FAERS Safety Report 15750434 (Version 1)
Quarter: 2018Q4

REPORT INFORMATION
  Report Type: Spontaneous
  Country: US (occurrence: US)
  Receive Date: 20181206
  Receipt Date: 20181206
  Transmission Date: 20190205
  Serious: Yes (Other)
  Sender: FDA-Public Use
  Company Number: None

PATIENT
  Age: 36 Year
  Sex: Female
  Weight: 50.4 kg

DRUGS (1)
  1. SERTRALINE HCL 50MG TABLET [Suspect]
     Active Substance: SERTRALINE HYDROCHLORIDE
     Dosage: ?          QUANTITY:0.5 TABLET(S);?
     Route: 048
     Dates: start: 20181205, end: 20181205

REACTIONS (5)
  - Dyspnoea [None]
  - Nervousness [None]
  - Hyperhidrosis [None]
  - Nausea [None]
  - Heart rate increased [None]

NARRATIVE: CASE EVENT DATE: 20181205
